FAERS Safety Report 7744037-3 (Version None)
Quarter: 2011Q3

REPORT INFORMATION
  Report Type: 
  Country: None (occurrence: None)
  Receive Date: 20110825
  Receipt Date: 20110815
  Transmission Date: 20111222
  Serious: Yes (Other)
  Sender: FDA-Public Use
  Company Number: DSA_47427_2011

PATIENT
  Sex: Female

DRUGS (2)
  1. WELLBUTRIN XL [Suspect]
     Indication: DEPRESSION
     Dosage: 150 MG QD ORAL
     Route: 048
     Dates: start: 20110812, end: 20110813
  2. ATENOLOL [Suspect]
     Indication: PRODUCT USED FOR UNKNOWN INDICATION
     Dosage: 1 TABLET ORAL
     Route: 048
     Dates: start: 20110812, end: 20110813

REACTIONS (7)
  - EYE PAIN [None]
  - THROAT IRRITATION [None]
  - SYNCOPE [None]
  - ERYTHEMA [None]
  - ARTHRALGIA [None]
  - PYREXIA [None]
  - PRURITUS [None]
